FAERS Safety Report 7007205-4 (Version None)
Quarter: 2010Q2

REPORT INFORMATION
  Report Type: 
  Country: None (occurrence: None)
  Receive Date: 20100225
  Receipt Date: 20091215
  Transmission Date: 20101027
  Serious: No
  Sender: FDA-Public Use
  Company Number: US-JNJFOC-20091205076

PATIENT
  Age: 4 Year
  Sex: Male
  Weight: 7.2576 kg

DRUGS (1)
  1. CHILDREN'S MOTRIN [Suspect]
     Indication: ACCIDENTAL EXPOSURE
     Dosage: 1/2 BOTTLE

REACTIONS (1)
  - ACCIDENTAL DRUG INTAKE BY CHILD [None]
